FAERS Safety Report 7246885-5 (Version None)
Quarter: 2011Q1

REPORT INFORMATION
  Report Type: 
  Country: None (occurrence: None)
  Receive Date: 20110127
  Receipt Date: 20110113
  Transmission Date: 20110831
  Serious: Yes (Hospitalization, Other)
  Sender: FDA-Public Use
  Company Number: FR-ELI_LILLY_AND_COMPANY-FR201010003457

PATIENT
  Age: 78 Year
  Sex: Female
  Weight: 36 kg

DRUGS (7)
  1. LASIX [Concomitant]
     Indication: HYPERTENSION
     Dosage: 20 MG, DAILY (1/D)
     Route: 048
  2. LEVOTHYROX [Concomitant]
     Indication: HYPOTHYROIDISM
     Dosage: 50 UG, DAILY (1/D)
     Route: 048
  3. UVEDOSE [Concomitant]
     Indication: OSTEOPOROSIS
     Dosage: 1 D/F, MONTHLY (1/M)
     Route: 048
     Dates: start: 20100101
  4. DILTIAZEM [Concomitant]
     Indication: HYPERTENSION
     Dosage: 300 MG, DAILY (1/D)
     Route: 048
  5. FORTEO [Suspect]
     Indication: OSTEOPOROSIS
     Dosage: 20 UG, DAILY (1/D)
     Route: 058
     Dates: start: 20100105
  6. HYPERIUM [Concomitant]
     Indication: HYPERTENSION
     Dosage: 2 D/F, DAILY (1/D)
     Route: 048
  7. OMEPRAZOLE [Concomitant]
     Indication: GASTROOESOPHAGEAL REFLUX DISEASE
     Dosage: 20 MG, DAILY (1/D)
     Route: 048

REACTIONS (6)
  - HYPERCALCAEMIA [None]
  - FALL [None]
  - HAEMATOMA [None]
  - SPINAL FRACTURE [None]
  - PELVIC FRACTURE [None]
  - FRACTURED SACRUM [None]
